FAERS Safety Report 5895029-0 (Version None)
Quarter: 2008Q3

REPORT INFORMATION
  Report Type: 
  Country: None (occurrence: None)
  Receive Date: 20080924
  Receipt Date: 20080917
  Transmission Date: 20090109
  Serious: Yes (Hospitalization)
  Sender: FDA-Public Use
  Company Number: JP-BRISTOL-MYERS SQUIBB COMPANY-14345029

PATIENT
  Age: 29 Year
  Sex: Male

DRUGS (3)
  1. EFAVIRENZ CAPS 200 MG [Suspect]
     Indication: HIV INFECTION
     Route: 048
     Dates: start: 20070515
  2. TRUVADA [Suspect]
     Indication: HIV INFECTION
     Dosage: FORM = TABS. 1 DOSAGEFORM = 1 TAB
     Route: 048
     Dates: start: 20070515
  3. BENAMBAX [Concomitant]
     Dates: start: 20070409, end: 20070904

REACTIONS (2)
  - IMMUNE RECONSTITUTION SYNDROME [None]
  - PNEUMONIA CRYPTOCOCCAL [None]
